FAERS Safety Report 9557293 (Version 2)
Quarter: 2013Q4

REPORT INFORMATION
  Report Type: Spontaneous
  Country: GB (occurrence: GB)
  Receive Date: 20130926
  Receipt Date: 20131021
  Transmission Date: 20140711
  Serious: Yes (Other)
  Sender: FDA-Public Use
  Company Number: PHFR2013GB005439

PATIENT
  Sex: Female
  Weight: 74 kg

DRUGS (1)
  1. CLOZARIL [Suspect]
     Indication: SCHIZOPHRENIA
     Dosage: UNK
     Route: 048
     Dates: start: 20030712

REACTIONS (5)
  - Fall [Unknown]
  - Lower respiratory tract infection [Unknown]
  - Malaise [Unknown]
  - Dizziness [Unknown]
  - Confusional state [Unknown]
